FAERS Safety Report 4736520-X (Version None)
Quarter: 2005Q3

REPORT INFORMATION
  Report Type: 
  Country: None (occurrence: None)
  Receive Date: 20050804
  Receipt Date: 20050722
  Transmission Date: 20060218
  Serious: Yes (Hospitalization, Other)
  Sender: FDA-Public Use
  Company Number: 2005077660

PATIENT
  Age: 65 Year
  Sex: Female
  Weight: 70.3075 kg

DRUGS (8)
  1. DETROL LA [Suspect]
     Indication: HYPERTONIC BLADDER
     Dosage: 4 MG (4 MG, 1 IN 1 D), ORAL
     Route: 048
     Dates: start: 20050407
  2. NEXIUM [Concomitant]
  3. CLARITIN [Concomitant]
  4. PROMETHAZINE [Concomitant]
  5. HYDROXYZINE [Concomitant]
  6. ZOLOFT [Concomitant]
  7. DAYPRO [Concomitant]
  8. ZYRTEC [Concomitant]

REACTIONS (6)
  - DRY MOUTH [None]
  - GASTROINTESTINAL OBSTRUCTION [None]
  - HEADACHE [None]
  - NAUSEA [None]
  - PAIN [None]
  - URINARY HESITATION [None]
